FAERS Safety Report 18476071 (Version 1)
Quarter: 2020Q4

REPORT INFORMATION
  Report Type: Spontaneous
  Country: US (occurrence: US)
  Receive Date: 20201106
  Receipt Date: 20201106
  Transmission Date: 20210114
  Serious: No
  Sender: FDA-Public Use
  Company Number: US-PERRIGO-20US009977

PATIENT
  Sex: Female

DRUGS (2)
  1. UNISOM SLEEPTABS [Suspect]
     Active Substance: DOXYLAMINE SUCCINATE
     Indication: MORNING SICKNESS
     Dosage: 12.5 MG, UNKNOWN
     Route: 048
     Dates: start: 202007
  2. UNISOM SLEEPTABS [Suspect]
     Active Substance: DOXYLAMINE SUCCINATE
     Indication: INSOMNIA

REACTIONS (3)
  - Drug effective for unapproved indication [Unknown]
  - Product administration error [Unknown]
  - Underdose [Unknown]

NARRATIVE: CASE EVENT DATE: 202007
